FAERS Safety Report 12090739 (Version 1)
Quarter: 2016Q1

REPORT INFORMATION
  Report Type: Spontaneous
  Country: US (occurrence: US)
  Receive Date: 20160218
  Receipt Date: 20160218
  Transmission Date: 20160526
  Serious: No
  Sender: FDA-Public Use
  Company Number: US-BAYER-2016-024856

PATIENT
  Age: 69 Year
  Sex: Male
  Weight: 90.7 kg

DRUGS (12)
  1. IBUPROFEN. [Concomitant]
     Active Substance: IBUPROFEN
  2. IRON [Concomitant]
     Active Substance: IRON
  3. CLARITIN REDITABS [Suspect]
     Active Substance: LORATADINE
     Indication: RASH
     Dosage: 1 DF, QD
     Route: 048
     Dates: start: 20160201
  4. VITAMIN D [Concomitant]
     Active Substance: CHOLECALCIFEROL
     Dosage: UNK
  5. TIKOSYN [Concomitant]
     Active Substance: DOFETILIDE
  6. SPIRONOLACTONE. [Concomitant]
     Active Substance: SPIRONOLACTONE
  7. MEDROL [Concomitant]
     Active Substance: METHYLPREDNISOLONE
  8. TYLENOL [Concomitant]
     Active Substance: ACETAMINOPHEN
  9. XARELTO [Concomitant]
     Active Substance: RIVAROXABAN
     Dosage: UNK
  10. ZANTAC [Concomitant]
     Active Substance: RANITIDINE HYDROCHLORIDE
  11. CALCIUM [Concomitant]
     Active Substance: CALCIUM
  12. RITUXAN [Concomitant]
     Active Substance: RITUXIMAB

REACTIONS (3)
  - Therapeutic response unexpected [None]
  - Product use issue [None]
  - Drug effect incomplete [None]
